FAERS Safety Report 18255718 (Version 2)
Quarter: 2020Q4

REPORT INFORMATION
  Report Type: Spontaneous
  Country: HR (occurrence: HR)
  Receive Date: 20200911
  Receipt Date: 20201012
  Transmission Date: 20210113
  Serious: Yes (Hospitalization)
  Sender: FDA-Public Use
  Company Number: HR-AMGEN-HRVSP2020146552

PATIENT
  Age: 50 Year
  Sex: Female

DRUGS (4)
  1. AIMOVIG [Suspect]
     Active Substance: ERENUMAB-AOOE
     Dosage: 70 MG
     Route: 058
     Dates: start: 20200416
  2. IBUPROFEN. [Concomitant]
     Active Substance: IBUPROFEN
     Indication: ARTHRITIS
     Dosage: 1200 MG
     Route: 048
     Dates: start: 2010
  3. AIMOVIG [Suspect]
     Active Substance: ERENUMAB-AOOE
     Indication: MIGRAINE
     Dosage: 70 MG, SO FAR RECEIVED 2 DOSES
     Route: 065
  4. ATENOLOL. [Concomitant]
     Active Substance: ATENOLOL
     Indication: TACHYCARDIA
     Dosage: 50 MG
     Route: 048
     Dates: start: 1995

REACTIONS (4)
  - Postmenopausal haemorrhage [Unknown]
  - Oral herpes [Unknown]
  - Metrorrhagia [Recovered/Resolved]
  - Nasal herpes [Unknown]
